FAERS Safety Report 18789678 (Version 2)
Quarter: 2021Q1

REPORT INFORMATION
  Report Type: Other
  Country: IR (occurrence: IR)
  Receive Date: 20210126
  Receipt Date: 20210210
  Transmission Date: 20210419
  Serious: Yes (Other)
  Sender: FDA-Public Use
  Company Number: IR-ROCHE-2757055

PATIENT
  Age: 39 Year
  Sex: Female

DRUGS (1)
  1. OCREVUS [Suspect]
     Active Substance: OCRELIZUMAB
     Indication: PRIMARY PROGRESSIVE MULTIPLE SCLEROSIS
     Dosage: DOSE :300MG/10ML
     Route: 042

REACTIONS (4)
  - Breast inflammation [Unknown]
  - Breast abscess [Unknown]
  - Breast pain [Unknown]
  - Mastitis [Unknown]
